FAERS Safety Report 14182953 (Version 4)
Quarter: 2018Q1

REPORT INFORMATION
  Report Type: Spontaneous
  Country: BR (occurrence: BR)
  Receive Date: 20171113
  Receipt Date: 20180222
  Transmission Date: 20180508
  Serious: Yes (Hospitalization, Other)
  Sender: FDA-Public Use
  Company Number: BR-GLAXOSMITHKLINE-BR2017GSK111501

PATIENT
  Age: 41 Year
  Sex: Female
  Weight: 59 kg

DRUGS (4)
  1. AZATHIOPRINE. [Concomitant]
     Active Substance: AZATHIOPRINE
     Indication: PRODUCT USED FOR UNKNOWN INDICATION
     Dosage: UNK
  2. BENLYSTA [Suspect]
     Active Substance: BELIMUMAB
     Indication: SYSTEMIC LUPUS ERYTHEMATOSUS
     Dosage: 580 MG, UNK
     Dates: start: 20170314
  3. PREDNISONE. [Concomitant]
     Active Substance: PREDNISONE
     Indication: PRODUCT USED FOR UNKNOWN INDICATION
     Dosage: 3 DF (TABLET), QD (20 MG)
  4. REUQUINOL (HYDROXYCHLOROQUINE SULFATE) [Concomitant]
     Indication: PRODUCT USED FOR UNKNOWN INDICATION
     Dosage: UNK

REACTIONS (23)
  - Pain [Recovering/Resolving]
  - Pyrexia [Recovering/Resolving]
  - Drug dose omission [Unknown]
  - Inappropriate schedule of drug administration [Recovered/Resolved]
  - Dermatitis allergic [Unknown]
  - Meningitis [Recovered/Resolved]
  - Skin lesion [Unknown]
  - Malaise [Unknown]
  - Headache [Recovered/Resolved]
  - Incorrect dose administered [Unknown]
  - Asthenia [Recovered/Resolved]
  - Migraine [Unknown]
  - Hypertension [Recovered/Resolved]
  - Ill-defined disorder [Recovering/Resolving]
  - Skin exfoliation [Unknown]
  - Underdose [Not Recovered/Not Resolved]
  - Systemic lupus erythematosus [Unknown]
  - Skin discolouration [Unknown]
  - Somnolence [Unknown]
  - Condition aggravated [Not Recovered/Not Resolved]
  - Alopecia [Unknown]
  - Skin disorder [Unknown]
  - Overdose [Recovered/Resolved]

NARRATIVE: CASE EVENT DATE: 201703
